FAERS Safety Report 22017178 (Version 1)
Quarter: 2023Q1

REPORT INFORMATION
  Report Type: Spontaneous
  Country: US (occurrence: None)
  Receive Date: 20230221
  Receipt Date: 20230221
  Transmission Date: 20230417
  Serious: Yes (Hospitalization)
  Sender: FDA-Public Use
  Company Number: 2023A037301

PATIENT
  Age: 876 Month
  Sex: Female
  Weight: 41.7 kg

DRUGS (1)
  1. BUDESONIDE\FORMOTEROL\GLYCOPYRRONIUM [Suspect]
     Active Substance: BUDESONIDE\FORMOTEROL\GLYCOPYRRONIUM
     Indication: Chronic obstructive pulmonary disease
     Dosage: 160/9/4.8 MCG, TWO INHALATIONS
     Route: 055

REACTIONS (6)
  - Parathyroid tumour [Recovered/Resolved]
  - Blood calcium increased [Unknown]
  - Hyperparathyroidism [Unknown]
  - Chest discomfort [Unknown]
  - Wrong technique in device usage process [Unknown]
  - Device ineffective [Not Recovered/Not Resolved]

NARRATIVE: CASE EVENT DATE: 20220101
